FAERS Safety Report 21261062 (Version 1)
Quarter: 2022Q3

REPORT INFORMATION
  Report Type: Spontaneous
  Country: CA (occurrence: CA)
  Receive Date: 20220826
  Receipt Date: 20220826
  Transmission Date: 20221027
  Serious: Yes (Life-Threatening, Hospitalization)
  Sender: FDA-Public Use
  Company Number: CA-BAYER-2022A118783

PATIENT
  Age: 74 Year
  Sex: Male
  Weight: 53 kg

DRUGS (13)
  1. XARELTO [Suspect]
     Active Substance: RIVAROXABAN
     Indication: Atrial fibrillation
     Dosage: 20 MG, QD
     Route: 048
  2. METOPROLOL [Suspect]
     Active Substance: METOPROLOL
  3. FUROSEMIDE [Concomitant]
     Active Substance: FUROSEMIDE
  4. FERROUS SULFATE [Concomitant]
     Active Substance: FERROUS SULFATE
  5. HYDROMORPHONE [Concomitant]
     Active Substance: HYDROMORPHONE
  6. PREGABALIN [Concomitant]
     Active Substance: PREGABALIN
  7. FOLIC ACID [Concomitant]
     Active Substance: FOLIC ACID
  8. PREDNISONE [Concomitant]
     Active Substance: PREDNISONE
  9. METHOTREXATE [Concomitant]
     Active Substance: METHOTREXATE
  10. NITROSTAT [Concomitant]
     Active Substance: NITROGLYCERIN
  11. TYLENOL [Concomitant]
     Active Substance: ACETAMINOPHEN
  12. ALENDRONATE SODIUM [Concomitant]
     Active Substance: ALENDRONATE SODIUM
  13. PANTOPRAZOLE [Concomitant]
     Active Substance: PANTOPRAZOLE

REACTIONS (8)
  - Fall [Recovering/Resolving]
  - Asthenia [Recovering/Resolving]
  - Haemoglobin abnormal [Recovering/Resolving]
  - Cardiogenic shock [Recovering/Resolving]
  - Septic shock [Recovering/Resolving]
  - Dyspnoea [Recovering/Resolving]
  - Blood pressure abnormal [Recovering/Resolving]
  - Heart rate abnormal [Recovering/Resolving]
